FAERS Safety Report 9968015 (Version 1)
Quarter: 2014Q1

REPORT INFORMATION
  Report Type: Report from Study
  Country: US (occurrence: US)
  Receive Date: 20140306
  Receipt Date: 20140306
  Transmission Date: 20141002
  Serious: No
  Sender: FDA-Public Use
  Company Number: US-ABBVIE-13P-163-1147672-00

PATIENT
  Sex: Female

DRUGS (7)
  1. HUMIRA [Suspect]
     Indication: CROHN^S DISEASE
     Dosage: LOADING DOSE
  2. HUMIRA [Suspect]
  3. HUMIRA [Suspect]
  4. HUMIRA [Suspect]
  5. IRON [Concomitant]
     Indication: ANAEMIA
     Dosage: 2-3 TIMES DAILY
  6. MULTIVITAMIN [Concomitant]
     Indication: PRODUCT USED FOR UNKNOWN INDICATION
  7. ASPIRIN [Concomitant]
     Indication: CEREBROVASCULAR ACCIDENT PROPHYLAXIS
     Dosage: 81MG DAILY

REACTIONS (5)
  - Chills [Not Recovered/Not Resolved]
  - Diarrhoea [Not Recovered/Not Resolved]
  - Rectal haemorrhage [Not Recovered/Not Resolved]
  - Pyrexia [Not Recovered/Not Resolved]
  - Pain [Not Recovered/Not Resolved]
